FAERS Safety Report 16291737 (Version 4)
Quarter: 2020Q1

REPORT INFORMATION
  Report Type: Spontaneous
  Country: US (occurrence: US)
  Receive Date: 20190509
  Receipt Date: 20200305
  Transmission Date: 20200409
  Serious: Yes (Hospitalization, Other)
  Sender: FDA-Public Use
  Company Number: US-CATALYST PHARMACEUTICALS, INC-2019CAT00055

PATIENT
  Age: 84 Year
  Sex: Male
  Weight: 83.9 kg

DRUGS (14)
  1. FIRDAPSE [Suspect]
     Active Substance: AMIFAMPRIDINE
     Indication: MYASTHENIC SYNDROME
     Dosage: 5 MG
     Route: 048
     Dates: start: 201902, end: 2019
  2. FIRDAPSE [Suspect]
     Active Substance: AMIFAMPRIDINE
     Dosage: WEANED HIM ON CAREFULLY, INCREASED DOSE EVERY 3 DAYS
     Route: 048
     Dates: start: 2019, end: 2019
  3. VITAMIN D3 [Concomitant]
     Active Substance: CHOLECALCIFEROL
     Dosage: 4000 U, 1X/DAY
  4. FIRDAPSE [Suspect]
     Active Substance: AMIFAMPRIDINE
     Dosage: 15 MG, 3X/DAY
     Route: 048
     Dates: start: 2019
  5. PANTOPRAZOLE [Concomitant]
     Active Substance: PANTOPRAZOLE
     Dosage: UNK, 1X/DAY
  6. ATORVASTATIN [Concomitant]
     Active Substance: ATORVASTATIN
     Dosage: 5 MG, 1X/DAY
  7. COLESTIPOL [Concomitant]
     Active Substance: COLESTIPOL
     Dosage: 1 G, 2X/DAY
  8. CENTRUM MULTIVITAMIN [Concomitant]
     Dosage: UNK, 1X/DAY
  9. CLOPIDOGREL [Concomitant]
     Active Substance: CLOPIDOGREL BISULFATE
     Dosage: 75 MG, 1X/DAY
     Dates: end: 201904
  10. PRESERVISION VITAMIN [Concomitant]
     Dosage: 1 DOSAGE UNITS, 2X/DAY
  11. IVIG [Concomitant]
     Active Substance: HUMAN IMMUNOGLOBULIN G
  12. FIRDAPSE [Suspect]
     Active Substance: AMIFAMPRIDINE
     Dosage: 15 MG, 3X/DAY
     Route: 048
     Dates: start: 2019
  13. LISINOPRIL. [Concomitant]
     Active Substance: LISINOPRIL
     Dosage: 5 MG, 1X/DAY
  14. VITAMIN B12 [Concomitant]
     Active Substance: CYANOCOBALAMIN
     Dosage: 1000 ?G, 1X/DAY

REACTIONS (17)
  - Fall [Not Recovered/Not Resolved]
  - Urticaria [Recovered/Resolved]
  - Seizure [Unknown]
  - Infection [Recovered/Resolved]
  - Aphasia [Not Recovered/Not Resolved]
  - Peripheral artery aneurysm [Not Recovered/Not Resolved]
  - Therapeutic product effect incomplete [Not Recovered/Not Resolved]
  - Head injury [Recovered/Resolved]
  - Brain neoplasm malignant [Not Recovered/Not Resolved]
  - Product dose omission [Unknown]
  - Incorrect dose administered [Unknown]
  - Aneurysm [Not Recovered/Not Resolved]
  - Rash [Recovered/Resolved]
  - Pruritus [Recovered/Resolved]
  - Scab [Unknown]
  - Asthenia [Unknown]
  - Speech disorder [Recovered/Resolved]

NARRATIVE: CASE EVENT DATE: 2019
